FAERS Safety Report 7548313-9 (Version None)
Quarter: 2011Q2

REPORT INFORMATION
  Report Type: 
  Country: None (occurrence: None)
  Receive Date: 20110615
  Receipt Date: 20110609
  Transmission Date: 20111010
  Serious: No
  Sender: FDA-Public Use
  Company Number: US-PFIZER INC-2011127311

PATIENT
  Sex: Male

DRUGS (2)
  1. NORVASC [Suspect]
     Dosage: UNK, 2X/DAY
  2. CLONIDINE [Concomitant]
     Dosage: UNK, 3X/DAY

REACTIONS (1)
  - DRUG INEFFECTIVE [None]
